FAERS Safety Report 14231649 (Version 2)
Quarter: 2018Q1

REPORT INFORMATION
  Report Type: Spontaneous
  Country: US (occurrence: US)
  Receive Date: 20171128
  Receipt Date: 20180129
  Transmission Date: 20180508
  Serious: No
  Sender: FDA-Public Use
  Company Number: US-GLAXOSMITHKLINE-US2017178245

PATIENT
  Age: 39 Year
  Sex: Female

DRUGS (2)
  1. MEMBERS MARK NICOTINE [Suspect]
     Active Substance: NICOTINE
     Indication: SMOKING CESSATION THERAPY
     Dosage: 21 MG, UNK
     Dates: start: 20171027, end: 20171110
  2. MEMBERS MARK NICOTINE [Suspect]
     Active Substance: NICOTINE
     Dosage: UNK

REACTIONS (5)
  - Application site erythema [Recovered/Resolved]
  - Application site pain [Recovered/Resolved]
  - Nicotine dependence [Unknown]
  - Drug ineffective [Unknown]
  - Product quality issue [Recovered/Resolved]

NARRATIVE: CASE EVENT DATE: 20171027
